FAERS Safety Report 5406163-3 (Version None)
Quarter: 2007Q3

REPORT INFORMATION
  Report Type: 
  Country: None (occurrence: None)
  Receive Date: 20070802
  Receipt Date: 20070802
  Transmission Date: 20080115
  Serious: No
  Sender: FDA-Public Use
  Company Number: None

PATIENT
  Age: 46 Year
  Sex: Female

DRUGS (1)
  1. RIBAPAK TAB 1200/DAY    1200MG/DAY   PAR [Suspect]
     Indication: HEPATITIS
     Dosage: 600MG BID PO
     Route: 048
     Dates: start: 20070303, end: 20070726

REACTIONS (1)
  - RASH GENERALISED [None]
